FAERS Safety Report 4513754-0 (Version None)
Quarter: 2004Q4

REPORT INFORMATION
  Report Type: 
  Country: None (occurrence: None)
  Receive Date: 20041130
  Receipt Date: 20041112
  Transmission Date: 20050328
  Serious: Yes (Disabling)
  Sender: FDA-Public Use
  Company Number: AU-BRISTOL-MYERS SQUIBB COMPANY-12776902

PATIENT

DRUGS (3)
  1. FLUPHENAZINE [Suspect]
  2. CLOZAPINE [Suspect]
  3. RISPERDAL [Suspect]

REACTIONS (4)
  - DROOLING [None]
  - DYSKINESIA [None]
  - PARAESTHESIA ORAL [None]
  - SPEECH DISORDER [None]
